FAERS Safety Report 18269083 (Version 3)
Quarter: 2021Q3

REPORT INFORMATION
  Report Type: Spontaneous
  Country: US (occurrence: US)
  Receive Date: 20200915
  Receipt Date: 20210924
  Transmission Date: 20211014
  Serious: Yes (Other)
  Sender: FDA-Public Use
  Company Number: US-PFIZER INC-2020354155

PATIENT
  Age: 61 Year
  Sex: Female
  Weight: 88.45 kg

DRUGS (2)
  1. LYRICA [Suspect]
     Active Substance: PREGABALIN
     Indication: FIBROMYALGIA
     Dosage: 450 MG, 2X/DAY (225MG, 2 CAPSULES BY MOUTH TWICE A DAY)
     Route: 048
  2. LYRICA [Suspect]
     Active Substance: PREGABALIN
     Indication: DIABETIC NEUROPATHY

REACTIONS (7)
  - Eye haemorrhage [Unknown]
  - Overdose [Unknown]
  - Dizziness [Unknown]
  - Back pain [Unknown]
  - Neck pain [Unknown]
  - Loss of consciousness [Unknown]
  - Cervical vertebral fracture [Unknown]

NARRATIVE: CASE EVENT DATE: 2019
